FAERS Safety Report 12807163 (Version 4)
Quarter: 2016Q4

REPORT INFORMATION
  Report Type: Spontaneous
  Country: JP (occurrence: JP)
  Receive Date: 20161004
  Receipt Date: 20161109
  Transmission Date: 20170207
  Serious: Yes (Death)
  Sender: FDA-Public Use
  Company Number: JP-SA-2016SA179857

PATIENT
  Age: 67 Year
  Sex: Male
  Weight: 58 kg

DRUGS (10)
  1. ELPLAT [Suspect]
     Active Substance: OXALIPLATIN
     Indication: COLON CANCER
     Dosage: 130 MG/BODY (82.1 MG/M2)
     Route: 041
     Dates: start: 20160826, end: 20160826
  2. PRIMPERAN [Concomitant]
     Active Substance: METOCLOPRAMIDE HYDROCHLORIDE
     Route: 042
     Dates: start: 20160828, end: 20160828
  3. 5-FU [Suspect]
     Active Substance: FLUOROURACIL
     Indication: COLON CANCER
     Dosage: 630 MG, (397.7 MG/M2) BOLUS THEN 3750 MG/BODY/D1-2 (2367.4 MG/M2/D1-2)
     Route: 040
     Dates: start: 20160826, end: 20160826
  4. CALCIUM LEVOFOLINATE [Suspect]
     Active Substance: LEVOLEUCOVORIN CALCIUM
     Indication: COLON CANCER
     Dosage: 315 MG/BODY (198.9 MG/M2)
     Route: 065
     Dates: start: 20160826, end: 20160826
  5. SOSEGON [Concomitant]
     Active Substance: PENTAZOCINE
     Route: 042
     Dates: start: 20160828, end: 20160828
  6. ROHYPNOL [Concomitant]
     Active Substance: FLUNITRAZEPAM
     Route: 042
     Dates: start: 20160828, end: 20160828
  7. POLARAMINE [Concomitant]
     Active Substance: DEXCHLORPHENIRAMINE MALEATE
     Route: 042
     Dates: start: 20160826, end: 20160826
  8. DEXART [Concomitant]
     Active Substance: DEXAMETHASONE SODIUM PHOSPHATE
     Route: 042
     Dates: start: 20160826, end: 20160827
  9. 5-FU [Suspect]
     Active Substance: FLUOROURACIL
     Indication: COLON CANCER
     Route: 041
     Dates: start: 20160826
  10. AVASTIN [Suspect]
     Active Substance: BEVACIZUMAB
     Indication: COLON CANCER
     Route: 041
     Dates: start: 20160826, end: 20160826

REACTIONS (9)
  - Hyperammonaemia [Fatal]
  - Toxic encephalopathy [Fatal]
  - Platelet count decreased [Not Recovered/Not Resolved]
  - Hepatic failure [Unknown]
  - Haemoglobin decreased [Not Recovered/Not Resolved]
  - Multiple organ dysfunction syndrome [Fatal]
  - Altered state of consciousness [Unknown]
  - White blood cell count decreased [Unknown]
  - Neutrophil count decreased [Recovered/Resolved]

NARRATIVE: CASE EVENT DATE: 20160905
